FAERS Safety Report 4510936-9 (Version None)
Quarter: 2004Q4

REPORT INFORMATION
  Report Type: 
  Country: None (occurrence: None)
  Receive Date: 20041025
  Receipt Date: 20031210
  Transmission Date: 20050328
  Serious: Yes (Other)
  Sender: FDA-Public Use
  Company Number: NSADSS2002039909

PATIENT
  Sex: Male

DRUGS (3)
  1. REMICADE [Suspect]
     Indication: CROHN'S DISEASE
     Dosage: INTRAVENOUS DRIP
     Route: 041
     Dates: start: 19990101, end: 20020901
  2. ELAVIL [Concomitant]
  3. ULTRAM [Concomitant]

REACTIONS (5)
  - CONDITION AGGRAVATED [None]
  - CROHN'S DISEASE [None]
  - IRON DEFICIENCY ANAEMIA [None]
  - LEUKOPENIA [None]
  - SEROSITIS [None]
